FAERS Safety Report 19130068 (Version 2)
Quarter: 2021Q3

REPORT INFORMATION
  Report Type: Spontaneous
  Country: US (occurrence: US)
  Receive Date: 20210413
  Receipt Date: 20210714
  Transmission Date: 20211014
  Serious: Yes (Disabling, Other)
  Sender: FDA-Public Use
  Company Number: US-BRISTOL-MYERS SQUIBB COMPANY-BMS-2021-034184

PATIENT
  Age: 73 Year
  Sex: Female
  Weight: 52.1 kg

DRUGS (4)
  1. ELIQUIS [Suspect]
     Active Substance: APIXABAN
     Indication: THROMBOSIS PROPHYLAXIS
     Dosage: 5 MILLIGRAM, BID
     Route: 048
     Dates: start: 201903
  2. ENTRESTO [Concomitant]
     Active Substance: SACUBITRIL\VALSARTAN
     Indication: PRODUCT USED FOR UNKNOWN INDICATION
     Dosage: UNK
     Route: 065
  3. LASIX [Concomitant]
     Active Substance: FUROSEMIDE
     Indication: SWELLING
     Route: 065
  4. VITAMIN D [COLECALCIFEROL] [Concomitant]
     Active Substance: CHOLECALCIFEROL
     Indication: PRODUCT USED FOR UNKNOWN INDICATION
     Route: 065

REACTIONS (11)
  - Paralysis [Unknown]
  - Multiple sclerosis [Unknown]
  - Abdominal pain upper [Unknown]
  - Prescribed underdose [Unknown]
  - Dyspnoea [Unknown]
  - Faeces discoloured [Unknown]
  - Bedridden [Unknown]
  - Contusion [Unknown]
  - Illness [Unknown]
  - Gastric haemorrhage [Unknown]
  - Treatment noncompliance [Unknown]
